FAERS Safety Report 8759539 (Version 2)
Quarter: 2012Q4

REPORT INFORMATION
  Report Type: 
  Country: US (occurrence: US)
  Receive Date: 20120829
  Receipt Date: 20120829
  Transmission Date: 20130627
  Serious: No
  Sender: FDA-Public Use
  Company Number: US-B.I. PHARMACEUTICALS,INC./RIDGEFIELD-2011-BP-09238BP

PATIENT
  Sex: Male

DRUGS (12)
  1. PRADAXA [Suspect]
     Dosage: 300 mg
     Route: 048
     Dates: start: 201009, end: 201012
  2. PRADAXA [Suspect]
     Dosage: 300 mg
     Route: 048
     Dates: start: 201101
  3. UNSPECIFIED INGREDIENT [Suspect]
     Indication: NON-HODGKIN^S LYMPHOMA
     Dates: end: 201012
  4. LEVOTHYROXINE [Concomitant]
     Indication: THYROID DISORDER
     Dosage: 150 mcg
     Route: 048
  5. BABY ASPIRIN [Concomitant]
     Indication: ANTICOAGULANT THERAPY
     Dosage: 81 mg
     Route: 048
     Dates: start: 1975
  6. SOTALOL [Concomitant]
     Indication: CARDIAC DISORDER
     Dosage: 160 mg
     Route: 048
     Dates: start: 2010
  7. POTASSIUM CHLORIDE [Concomitant]
     Indication: BLOOD POTASSIUM DECREASED
     Dosage: 10 mEq
     Route: 048
     Dates: start: 2011
  8. PRILOSEC [Concomitant]
     Indication: DYSPEPSIA
     Dosage: 20 mg
     Route: 048
     Dates: start: 2007
  9. CHLORTHALIDONE [Concomitant]
     Indication: FLUID RETENTION
     Dosage: 25 mg
     Route: 048
     Dates: start: 2010
  10. VASOTEC [Concomitant]
     Indication: CARDIAC DISORDER
     Dosage: 20 mg
     Route: 048
     Dates: start: 2000
  11. MAGNESIUM OXIDE [Concomitant]
     Indication: BLOOD MAGNESIUM DECREASED
     Dates: start: 201205
  12. ZOCOR [Concomitant]
     Indication: BLOOD CHOLESTEROL
     Dosage: 40 mg
     Route: 048
     Dates: start: 1995

REACTIONS (7)
  - Rash [Unknown]
  - Rash generalised [Recovered/Resolved]
  - Pain of skin [Recovered/Resolved]
  - Skin warm [Recovered/Resolved]
  - Skin exfoliation [Recovered/Resolved]
  - Drug ineffective [Recovered/Resolved]
  - Blood magnesium decreased [Not Recovered/Not Resolved]
